FAERS Safety Report 19519071 (Version 1)
Quarter: 2021Q3

REPORT INFORMATION
  Report Type: Spontaneous
  Country: US (occurrence: US)
  Receive Date: 20210712
  Receipt Date: 20210712
  Transmission Date: 20211014
  Serious: Yes (Other)
  Sender: FDA-Public Use
  Company Number: US-ACELRX PHARMACEUTICALS, INC-ACEL20210683

PATIENT
  Age: 50 Year
  Sex: Female
  Weight: 70.37 kg

DRUGS (2)
  1. DSUVIA [Suspect]
     Active Substance: SUFENTANIL
     Indication: ANALGESIC THERAPY
     Route: 060
     Dates: start: 20210702, end: 20210702
  2. DSUVIA [Suspect]
     Active Substance: SUFENTANIL
     Route: 060
     Dates: start: 20210702, end: 20210702

REACTIONS (4)
  - Somnolence [Recovered/Resolved]
  - Respiratory depression [Recovered/Resolved]
  - Oxygen saturation decreased [Recovered/Resolved]
  - Reversal of opiate activity [Recovered/Resolved]

NARRATIVE: CASE EVENT DATE: 20210702
